FAERS Safety Report 7458744-3 (Version None)
Quarter: 2011Q2

REPORT INFORMATION
  Report Type: 
  Country: None (occurrence: None)
  Receive Date: 20110504
  Receipt Date: 20110427
  Transmission Date: 20111010
  Serious: Yes (Hospitalization, Other)
  Sender: FDA-Public Use
  Company Number: PHHY2011GB35228

PATIENT
  Age: 69 Year
  Sex: Female
  Weight: 65 kg

DRUGS (6)
  1. METHOTREXATE [Suspect]
     Indication: RHEUMATOID ARTHRITIS
     Dosage: 15 MG, QW
     Route: 048
     Dates: end: 20110407
  2. FUROSEMIDE [Concomitant]
     Dosage: 20 MG, QD
     Route: 048
  3. VERAPAMIL [Concomitant]
     Dosage: 240 MG, QD
     Route: 048
  4. FOLIC ACID [Concomitant]
     Dosage: 5 MG, QD
     Route: 048
  5. LOSARTAN [Concomitant]
     Dosage: 100 MG, QD
     Route: 048
  6. FENOFIBRATE [Concomitant]
     Dosage: 67 MG, QD
     Route: 048

REACTIONS (5)
  - WHITE BLOOD CELL COUNT DECREASED [None]
  - NEUTROPHIL COUNT DECREASED [None]
  - DYSPNOEA [None]
  - VITAMIN B12 DECREASED [None]
  - PNEUMONITIS [None]
